FAERS Safety Report 5181196-3 (Version None)
Quarter: 2006Q4

REPORT INFORMATION
  Report Type: 
  Country: None (occurrence: None)
  Receive Date: 20061220
  Receipt Date: 20051104
  Transmission Date: 20070319
  Serious: No
  Sender: FDA-Public Use
  Company Number: US-GLAXOSMITHKLINE-A0580996A

PATIENT
  Age: 54 Year
  Sex: Female

DRUGS (3)
  1. COMMIT [Suspect]
     Dates: start: 20051104
  2. NICODERM CQ [Suspect]
  3. NICODERM CQ [Suspect]

REACTIONS (5)
  - APPLICATION SITE SCAR [None]
  - APPLICATION SITE URTICARIA [None]
  - APPLICATION SITE VESICLES [None]
  - NAUSEA [None]
  - SALIVARY HYPERSECRETION [None]
